FAERS Safety Report 10381856 (Version 3)
Quarter: 2014Q3

REPORT INFORMATION
  Report Type: Spontaneous
  Country: CA (occurrence: None)
  Receive Date: 20140811
  Receipt Date: 20140930
  Transmission Date: 20150326
  Serious: Yes (Other)
  Sender: FDA-Public Use
  Company Number: 2014CA006637

PATIENT
  Age: 90 Year
  Sex: Male

DRUGS (1)
  1. ELIGARD [Suspect]
     Active Substance: LEUPROLIDE ACETATE
     Indication: PROSTATE CANCER
     Dates: start: 20120919, end: 20140219

REACTIONS (6)
  - Insomnia [None]
  - Feeling hot [None]
  - Abasia [None]
  - Gait disturbance [None]
  - Hot flush [None]
  - Paraesthesia [None]
